FAERS Safety Report 7358554-1 (Version None)
Quarter: 2011Q1

REPORT INFORMATION
  Report Type: 
  Country: None (occurrence: None)
  Receive Date: 20110317
  Receipt Date: 20110309
  Transmission Date: 20110831
  Serious: Yes (Hospitalization)
  Sender: FDA-Public Use
  Company Number: US-GENZYME-POMP-1001396

PATIENT
  Sex: Female
  Weight: 15 kg

DRUGS (6)
  1. MONTELUKAST SODIUM [Concomitant]
     Indication: PRODUCT USED FOR UNKNOWN INDICATION
     Dosage: 4 MG, UNK
     Dates: end: 20110101
  2. VANCOMYCIN [Concomitant]
     Indication: PREMEDICATION
     Route: 042
  3. ZYRTEC [Concomitant]
     Indication: PREMEDICATION
     Dosage: 10 MG, QW
     Route: 048
  4. HEPARIN [Concomitant]
     Indication: PREMEDICATION
     Dosage: UNK
     Route: 042
  5. MYOZYME [Suspect]
     Indication: GLYCOGEN STORAGE DISEASE TYPE II
     Dosage: 500 MG, QW
     Route: 042
     Dates: start: 20080808
  6. FERROUS SULFATE TAB [Concomitant]
     Indication: PRODUCT USED FOR UNKNOWN INDICATION
     Dosage: UNK

REACTIONS (7)
  - PYREXIA [None]
  - OXYGEN SATURATION DECREASED [None]
  - NASAL FLARING [None]
  - DYSPNOEA [None]
  - VOMITING [None]
  - TACHYPNOEA [None]
  - WHEEZING [None]
